FAERS Safety Report 9602036 (Version 5)
Quarter: 2014Q2

REPORT INFORMATION
  Report Type: Report from Study
  Country: DE (occurrence: DE)
  Receive Date: 20131007
  Receipt Date: 20140408
  Transmission Date: 20141212
  Serious: Yes (Hospitalization)
  Sender: FDA-Public Use
  Company Number: PHHO2013DE012648

PATIENT
  Sex: 0

DRUGS (8)
  1. HYDROCORTISONE [Concomitant]
     Indication: PRIMARY ADRENAL INSUFFICIENCY
     Dosage: 25 MG, QD
     Route: 048
  2. ASTONIN H [Concomitant]
     Indication: PRIMARY ADRENAL INSUFFICIENCY
     Dosage: 1 MG, QD
     Route: 048
  3. BERLTHYROX [Concomitant]
     Indication: OVARIAN NEOPLASM
     Dosage: 100 UG, QD
     Route: 048
  4. CABERGOLINE [Concomitant]
     Indication: RECURRENT CANCER
     Dosage: 2.5 MG, QD
     Route: 048
     Dates: start: 201003
  5. PROTAPHANE [Concomitant]
     Indication: DIABETES MELLITUS
     Dosage: 10 IU, QD
     Route: 058
     Dates: start: 201306
  6. NOVONORM [Concomitant]
     Indication: DIABETES MELLITUS
     Dosage: 1 MG, QD
     Route: 048
     Dates: start: 201304
  7. RAMIPRIL [Concomitant]
     Indication: HYPERTENSION
     Dosage: 7.5 MG, QD
     Route: 048
     Dates: start: 201212
  8. SOM230 [Suspect]
     Indication: NEUROENDOCRINE TUMOUR
     Dosage: 60 MG, UNK
     Route: 030
     Dates: start: 20110523

REACTIONS (2)
  - Aortic thrombosis [Recovered/Resolved]
  - Embolism arterial [Recovered/Resolved]
